FAERS Safety Report 9880568 (Version 1)
Quarter: 2014Q1

REPORT INFORMATION
  Report Type: Spontaneous
  Country: US (occurrence: US)
  Receive Date: 20140207
  Receipt Date: 20140207
  Transmission Date: 20141002
  Serious: No
  Sender: FDA-Public Use
  Company Number: US-B.I. PHARMACEUTICALS,INC./RIDGEFIELD-2014-BI-05357SG

PATIENT
  Sex: 0

DRUGS (6)
  1. SPIRIVA [Suspect]
     Indication: PRODUCT USED FOR UNKNOWN INDICATION
  2. ASPIRIN [Concomitant]
  3. NORVASC [Concomitant]
  4. PLAVIX [Concomitant]
  5. PREVACID [Concomitant]
  6. PRILOSEC [Concomitant]

REACTIONS (1)
  - Anosmia [Unknown]
